FAERS Safety Report 6727187-X (Version None)
Quarter: 2010Q2

REPORT INFORMATION
  Report Type: 
  Country: None (occurrence: None)
  Receive Date: 20100517
  Receipt Date: 20100506
  Transmission Date: 20101027
  Serious: Yes (Hospitalization)
  Sender: FDA-Public Use
  Company Number: NL-BAXTER-2010BH007292

PATIENT
  Sex: Female

DRUGS (4)
  1. GAMMAGARD LIQUID [Suspect]
     Indication: DRUG USE FOR UNKNOWN INDICATION
     Route: 065
     Dates: start: 20100216, end: 20100216
  2. GAMMAGARD LIQUID [Suspect]
     Route: 065
     Dates: start: 20100216, end: 20100216
  3. GAMMAGARD LIQUID [Suspect]
     Route: 065
     Dates: start: 20100120, end: 20100120
  4. GAMMAGARD LIQUID [Suspect]
     Route: 065
     Dates: start: 20100120, end: 20100120

REACTIONS (3)
  - BLOOD PRESSURE INCREASED [None]
  - MALAISE [None]
  - SYNCOPE [None]
